FAERS Safety Report 12855003 (Version 1)
Quarter: 2016Q4

REPORT INFORMATION
  Report Type: Spontaneous
  Country: GR (occurrence: GR)
  Receive Date: 20161017
  Receipt Date: 20161017
  Transmission Date: 20170207
  Serious: Yes (Life-Threatening)
  Sender: FDA-Public Use
  Company Number: GR-JNJFOC-20161011727

PATIENT
  Age: 81 Year
  Sex: Male
  Weight: 68 kg

DRUGS (5)
  1. SALOSPIR [Suspect]
     Active Substance: ASPIRIN
     Indication: VASCULAR GRAFT
     Route: 048
     Dates: start: 20150410, end: 20160926
  2. LIPITOR [Concomitant]
     Active Substance: ATORVASTATIN CALCIUM
     Indication: DYSLIPIDAEMIA
     Route: 048
     Dates: start: 20150410
  3. XARELTO [Suspect]
     Active Substance: RIVAROXABAN
     Indication: ATRIAL FIBRILLATION
     Route: 048
     Dates: start: 20160210, end: 20160926
  4. DILATREND [Concomitant]
     Active Substance: CARVEDILOL
     Indication: ATRIAL FIBRILLATION
     Route: 065
  5. ANGORON [Concomitant]
     Active Substance: AMIODARONE HYDROCHLORIDE
     Indication: ATRIAL FIBRILLATION
     Route: 065
     Dates: start: 20150410

REACTIONS (3)
  - Dyspnoea [Unknown]
  - Chest pain [Unknown]
  - Anaemia [Unknown]

NARRATIVE: CASE EVENT DATE: 20160926
